FAERS Safety Report 4611698-7 (Version None)
Quarter: 2005Q1

REPORT INFORMATION
  Report Type: 
  Country: None (occurrence: None)
  Receive Date: 20050311
  Receipt Date: 20041201
  Transmission Date: 20050727
  Serious: No
  Sender: FDA-Public Use
  Company Number: 2004-BP-13142BP

PATIENT
  Age: 71 Year
  Sex: Female
  Weight: 65.6 kg

DRUGS (5)
  1. SPIRIVA [Suspect]
     Indication: CHRONIC OBSTRUCTIVE PULMONARY DISEASE
     Dosage: 18 MCG (18 MCG), IH
     Route: 055
     Dates: start: 20041115, end: 20041129
  2. ALBUTEROL [Concomitant]
  3. VERAPAMIL [Concomitant]
  4. CALCIUM (CALCIUM) [Concomitant]
  5. ACETYLSALICYLIC ACID SRT [Concomitant]

REACTIONS (1)
  - PHARYNGOLARYNGEAL PAIN [None]
